FAERS Safety Report 12610410 (Version 1)
Quarter: 2016Q3

REPORT INFORMATION
  Report Type: Spontaneous
  Country: US (occurrence: None)
  Receive Date: 20160729
  Receipt Date: 20160729
  Transmission Date: 20161109
  Serious: Yes (Other)
  Sender: FDA-Public Use
  Company Number: None

PATIENT
  Age: 66 Year
  Sex: Female
  Weight: 72.58 kg

DRUGS (27)
  1. SLO-NIACIN [Concomitant]
     Active Substance: DIETARY SUPPLEMENT
  2. BISOPRL/HCTZ [Concomitant]
  3. CALCIUM [Concomitant]
     Active Substance: CALCIUM
  4. LUTEIN [Concomitant]
     Active Substance: LUTEIN
  5. HYDROCHLOROTHIAZIDE. [Concomitant]
     Active Substance: HYDROCHLOROTHIAZIDE
  6. VITAMIN D3 [Concomitant]
     Active Substance: CHOLECALCIFEROL
  7. VITAMIN B12 [Concomitant]
     Active Substance: CYANOCOBALAMIN
  8. CRANBERRY. [Concomitant]
     Active Substance: CRANBERRY
  9. PROGESTERONE. [Concomitant]
     Active Substance: PROGESTERONE
  10. EPA [Concomitant]
  11. COQ10 [Concomitant]
     Active Substance: UBIDECARENONE
  12. ASPIRIN. [Concomitant]
     Active Substance: ASPIRIN
  13. ESTRADIOL. [Concomitant]
     Active Substance: ESTRADIOL
  14. PROOMEGA [Concomitant]
  15. DHEA [Concomitant]
     Active Substance: PRASTERONE
  16. FOLIC ACID. [Concomitant]
     Active Substance: FOLIC ACID
  17. ESCITALOPRAM 10MG [Suspect]
     Active Substance: ESCITALOPRAM OXALATE
     Indication: SEASONAL AFFECTIVE DISORDER
     Dosage: 10 MG 90 TABLETS ONCE A DAY TAKEN BY MOUTH
     Route: 048
     Dates: start: 20151230, end: 20160215
  18. TESTOSTERONE CREAM 2% [Concomitant]
  19. DHA [Concomitant]
     Active Substance: DIETARY SUPPLEMENT
  20. MILK THISTLE SEED [Concomitant]
  21. NABUMETONE. [Concomitant]
     Active Substance: NABUMETONE
  22. ZANTAC [Concomitant]
     Active Substance: RANITIDINE HYDROCHLORIDE
  23. MELATONIN [Concomitant]
     Active Substance: MELATONIN
  24. MULTI VITAMIN [Concomitant]
     Active Substance: VITAMINS
  25. EFA [Concomitant]
  26. PROBIOTIC [Concomitant]
     Active Substance: PROBIOTICS NOS
  27. SELENIUM [Concomitant]
     Active Substance: SELENIUM

REACTIONS (3)
  - Eye pain [None]
  - Dry eye [None]
  - Vitreous floaters [None]

NARRATIVE: CASE EVENT DATE: 20160212
